FAERS Safety Report 6395990-4 (Version None)
Quarter: 2009Q4

REPORT INFORMATION
  Report Type: 
  Country: None (occurrence: None)
  Receive Date: 20091009
  Receipt Date: 20091005
  Transmission Date: 20100525
  Serious: Yes (Life-Threatening, Hospitalization, Other)
  Sender: FDA-Public Use
  Company Number: PHHY2009CA37720

PATIENT
  Sex: Female

DRUGS (11)
  1. DIOVAN [Suspect]
     Dosage: HALF TABLET PER DAY
     Route: 048
  2. PLAVIX [Concomitant]
  3. LIPITOR [Concomitant]
  4. NIASPAN [Concomitant]
  5. EZETROL [Concomitant]
  6. ASPIRIN [Concomitant]
     Dosage: 81 MG, UNK
  7. SYNTHROID [Concomitant]
  8. FUROSEMIDE [Concomitant]
  9. IRON [Concomitant]
  10. STOOL SOFTENER [Concomitant]
  11. MULTI-VITAMINS [Concomitant]

REACTIONS (4)
  - AGITATION [None]
  - ANOXIC ENCEPHALOPATHY [None]
  - CARDIAC ARREST [None]
  - COMA [None]
